FAERS Safety Report 4400882-3 (Version None)
Quarter: 2004Q3

REPORT INFORMATION
  Report Type: 
  Country: None (occurrence: None)
  Receive Date: 20040907
  Receipt Date: 20030717
  Transmission Date: 20050211
  Serious: Yes (Hospitalization)
  Sender: FDA-Public Use
  Company Number: US-BRISTOL-MYERS SQUIBB COMPANY-12329520

PATIENT
  Age: 71 Year
  Sex: Male
  Weight: 134 kg

DRUGS (6)
  1. COUMADIN [Suspect]
     Indication: DEEP VEIN THROMBOSIS
     Dosage: ^STARTED COUMADIN IN A VARYING DOSE + CURRENTLY TAKES 7.5 MG, 1 TAB DAILY^
     Route: 048
     Dates: start: 20010901
  2. PACERONE [Interacting]
     Dates: start: 20030301
  3. LIPITOR [Concomitant]
  4. ZESTRIL [Concomitant]
  5. THYROID PREPARATION [Concomitant]
  6. DIURETIC [Concomitant]

REACTIONS (4)
  - ATRIAL FIBRILLATION [None]
  - DRUG INTERACTION [None]
  - EPISTAXIS [None]
  - LOCALISED INFECTION [None]
